FAERS Safety Report 15308499 (Version 4)
Quarter: 2018Q4

REPORT INFORMATION
  Report Type: Report from Study
  Country: US (occurrence: US)
  Receive Date: 20180822
  Receipt Date: 20181220
  Transmission Date: 20190204
  Serious: Yes (Hospitalization)
  Sender: FDA-Public Use
  Company Number: US-EISAI MEDICAL RESEARCH-EC-2018-039917

PATIENT
  Age: 75 Year
  Sex: Female
  Weight: 51.5 kg

DRUGS (12)
  1. LENVATINIB [Suspect]
     Active Substance: LENVATINIB
     Indication: PAPILLARY RENAL CELL CARCINOMA
     Route: 048
     Dates: start: 20180305, end: 20180504
  2. LISINOPRIL. [Concomitant]
     Active Substance: LISINOPRIL
  3. LACTULOSE. [Concomitant]
     Active Substance: LACTULOSE
  4. ATROPINE- DIPHENOXYLATE [Concomitant]
  5. OTC DRY EYES DROPS [Concomitant]
  6. LENVATINIB [Suspect]
     Active Substance: LENVATINIB
     Route: 048
     Dates: start: 201805, end: 20181106
  7. EVEROLIMUS. [Suspect]
     Active Substance: EVEROLIMUS
     Route: 048
     Dates: start: 201805, end: 20181106
  8. MEGESTROL [Concomitant]
     Active Substance: MEGESTROL
  9. LENVATINIB [Suspect]
     Active Substance: LENVATINIB
     Route: 048
     Dates: start: 2018, end: 20181213
  10. LEVOTHYROXINE. [Concomitant]
     Active Substance: LEVOTHYROXINE
  11. EVEROLIMUS. [Suspect]
     Active Substance: EVEROLIMUS
     Route: 048
     Dates: start: 2018, end: 20181213
  12. EVEROLIMUS. [Suspect]
     Active Substance: EVEROLIMUS
     Indication: PAPILLARY RENAL CELL CARCINOMA
     Route: 048
     Dates: start: 20180305, end: 20180504

REACTIONS (8)
  - Coagulopathy [Unknown]
  - Fall [Recovering/Resolving]
  - Confusional state [Recovering/Resolving]
  - Mental status changes [Unknown]
  - Hepatic encephalopathy [Unknown]
  - Haematochezia [Recovered/Resolved]
  - Diarrhoea [Recovered/Resolved]
  - Dizziness [Recovering/Resolving]

NARRATIVE: CASE EVENT DATE: 20180506
